FAERS Safety Report 8875262 (Version 1)
Quarter: 2012Q4

REPORT INFORMATION
  Report Type: 
  Country: US (occurrence: US)
  Receive Date: 20121023
  Receipt Date: 20121023
  Transmission Date: 20130627
  Serious: Yes (Life-Threatening, Hospitalization)
  Sender: FDA-Public Use
  Company Number: US-BAYER-2012-108979

PATIENT
  Age: 21 Year
  Sex: Female
  Weight: 58.96 kg

DRUGS (21)
  1. YAZ [Suspect]
  2. YASMIN [Suspect]
     Indication: ACNE
  3. OCELLA [Suspect]
  4. AMBIEN [Concomitant]
     Indication: DEPRESSION
  5. AMBIEN [Concomitant]
     Indication: ANXIETY
  6. ZOLOFT [Concomitant]
  7. TETRACYCLINE [Concomitant]
  8. MINOCYCLINE [Concomitant]
  9. TRAZADONE [Concomitant]
  10. ENEMA [PHOSPHORIC ACID SODIUM,SODIUM PHOSPHATE DIBASIC] [Concomitant]
     Indication: CONSTIPATION
  11. TYLENOL [Concomitant]
     Indication: CONSTIPATION
  12. ACETAMINOPHEN [Concomitant]
  13. DOCUSATE [Concomitant]
  14. FLINSTONES GUMMIES CHEW [Concomitant]
  15. RISPERIDONE [Concomitant]
     Indication: PSYCHOTIC EPISODE
  16. DILANTIN [Concomitant]
     Indication: SEIZURE
  17. PHENYTOIN [Concomitant]
  18. DANTROLENE [Concomitant]
  19. HALDOL [Concomitant]
     Indication: PSYCHOTIC EPISODE
  20. ATIVAN [Concomitant]
     Indication: PSYCHOTIC EPISODE
  21. TRAZODONE [Concomitant]

REACTIONS (3)
  - Pulmonary embolism [Recovering/Resolving]
  - Pelvic venous thrombosis [Recovering/Resolving]
  - Deep vein thrombosis [None]
